FAERS Safety Report 11851699 (Version 1)
Quarter: 2015Q4

REPORT INFORMATION
  Report Type: Report from Study
  Country: VE (occurrence: VE)
  Receive Date: 20151218
  Receipt Date: 20151218
  Transmission Date: 20160305
  Serious: Yes (Other)
  Sender: FDA-Public Use
  Company Number: PHHY2015VE165610

PATIENT
  Sex: Male

DRUGS (1)
  1. SANDOSTATIN LAR DEPOT [Suspect]
     Active Substance: OCTREOTIDE ACETATE
     Indication: PITUITARY TUMOUR
     Dosage: 20 MG, QMO
     Route: 065
     Dates: start: 20120529

REACTIONS (10)
  - Renal injury [Unknown]
  - General physical health deterioration [Unknown]
  - Hypersensitivity [Unknown]
  - Left ventricular dysfunction [Unknown]
  - Malaise [Unknown]
  - Cardiac disorder [Unknown]
  - Pruritus [Unknown]
  - Brain hypoxia [Unknown]
  - Dizziness [Unknown]
  - Memory impairment [Unknown]
